FAERS Safety Report 14689923 (Version 1)
Quarter: 2018Q1

REPORT INFORMATION
  Report Type: Spontaneous
  Country: US (occurrence: US)
  Receive Date: 20180327
  Receipt Date: 20180327
  Transmission Date: 20180509
  Serious: Yes (Disabling)
  Sender: FDA-Public Use
  Company Number: None

PATIENT
  Age: 83 Year
  Sex: Male
  Weight: 94.5 kg

DRUGS (14)
  1. LEVOFLOXACIN. [Suspect]
     Active Substance: LEVOFLOXACIN
     Indication: PNEUMONIA
     Dosage: ?          QUANTITY:7 TABLET(S);?
     Route: 048
  2. SUCRALFATE. [Concomitant]
     Active Substance: SUCRALFATE
  3. BUMETINIDE [Concomitant]
     Active Substance: BUMETANIDE
  4. YS,DI;PDOM [Concomitant]
  5. PRAVASTATIN. [Concomitant]
     Active Substance: PRAVASTATIN
  6. WARFARIN [Concomitant]
     Active Substance: WARFARIN
  7. OMEGA Q PLUS [Concomitant]
  8. KLOR-CON [Concomitant]
     Active Substance: POTASSIUM CHLORIDE
  9. OMEPRAZOLE. [Concomitant]
     Active Substance: OMEPRAZOLE
  10. ALLEGRA ALLERGY [Concomitant]
     Active Substance: FEXOFENADINE HYDROCHLORIDE
  11. METROPOLOL [Concomitant]
     Active Substance: METOPROLOL
  12. DILTIAZEM. [Concomitant]
     Active Substance: DILTIAZEM
  13. FINASTERIDE. [Concomitant]
     Active Substance: FINASTERIDE
  14. LORTAB [Concomitant]
     Active Substance: ACETAMINOPHEN\HYDROCODONE BITARTRATE

REACTIONS (3)
  - Joint swelling [None]
  - Tendonitis [None]
  - Gait inability [None]

NARRATIVE: CASE EVENT DATE: 20171203
